FAERS Safety Report 15461553 (Version 2)
Quarter: 2018Q4

REPORT INFORMATION
  Report Type: Report from Study
  Country: US (occurrence: US)
  Receive Date: 20181003
  Receipt Date: 20181106
  Transmission Date: 20190204
  Serious: Yes (Hospitalization, Other)
  Sender: FDA-Public Use
  Company Number: US-GILEAD-2018-0366169

PATIENT
  Age: 70 Year
  Sex: Female

DRUGS (16)
  1. AMBRISENTAN [Suspect]
     Active Substance: AMBRISENTAN
     Indication: PULMONARY ARTERIAL HYPERTENSION
     Dosage: 10 MG, QD
     Route: 065
     Dates: start: 20170504
  2. CARVEDILOL. [Concomitant]
     Active Substance: CARVEDILOL
  3. TYVASO [Concomitant]
     Active Substance: TREPROSTINIL
  4. VITAMIN D3 [Concomitant]
     Active Substance: CHOLECALCIFEROL
  5. BONIVA [Concomitant]
     Active Substance: IBANDRONATE SODIUM
  6. HYDROXYCHLOROQUINE [Concomitant]
     Active Substance: HYDROXYCHLOROQUINE
  7. TORSEMIDE. [Concomitant]
     Active Substance: TORSEMIDE
  8. OMEPRAZOLE. [Concomitant]
     Active Substance: OMEPRAZOLE
  9. ASPIRIN [ACETYLSALICYLIC ACID] [Concomitant]
     Active Substance: ASPIRIN
  10. LEVOTHYROXIN [Concomitant]
     Active Substance: LEVOTHYROXINE
  11. ROPINIROLE. [Concomitant]
     Active Substance: ROPINIROLE
  12. VELTASSA [Concomitant]
     Active Substance: PATIROMER
  13. ENALAPRIL [Concomitant]
     Active Substance: ENALAPRIL
  14. PREDNISONE. [Concomitant]
     Active Substance: PREDNISONE
  15. EPLERENONE. [Concomitant]
     Active Substance: EPLERENONE
  16. FOLIC ACID. [Concomitant]
     Active Substance: FOLIC ACID

REACTIONS (2)
  - Fall [Not Recovered/Not Resolved]
  - Femur fracture [Not Recovered/Not Resolved]

NARRATIVE: CASE EVENT DATE: 20180924
